FAERS Safety Report 6819252-3 (Version None)
Quarter: 2010Q3

REPORT INFORMATION
  Report Type: 
  Country: None (occurrence: None)
  Receive Date: 20100707
  Receipt Date: 20100628
  Transmission Date: 20110219
  Serious: Yes (Hospitalization, Other)
  Sender: FDA-Public Use
  Company Number: JP-BAYER-200911322BYL

PATIENT
  Age: 74 Year
  Sex: Female
  Weight: 60 kg

DRUGS (7)
  1. NEXAVAR [Suspect]
     Indication: RENAL CELL CARCINOMA
     Route: 048
     Dates: start: 20061001
  2. NEXAVAR [Suspect]
     Route: 048
     Dates: end: 20070101
  3. NEXAVAR [Suspect]
     Route: 048
     Dates: start: 20070101, end: 20080401
  4. NEXAVAR [Suspect]
     Dosage: UNIT DOSE: 200 MG
     Route: 048
     Dates: start: 20090320, end: 20090325
  5. NEXAVAR [Suspect]
     Dosage: UNIT DOSE: 200 MG
     Route: 048
     Dates: start: 20090409, end: 20090410
  6. NEXAVAR [Suspect]
     Dosage: UNIT DOSE: 200 MG
     Route: 048
     Dates: start: 20080421, end: 20090304
  7. INSULIN [Concomitant]
     Dosage: SINCE BEFORE ADMINISTRATION
     Route: 065

REACTIONS (16)
  - ABDOMINAL PAIN [None]
  - ALOPECIA [None]
  - BRAIN STEM INFARCTION [None]
  - CEREBRAL INFARCTION [None]
  - CHOLECYSTITIS [None]
  - CONDITION AGGRAVATED [None]
  - FACE OEDEMA [None]
  - HYPERTENSION [None]
  - HYPOTHYROIDISM [None]
  - MALIGNANT NEOPLASM PROGRESSION [None]
  - METASTASES TO BONE [None]
  - METASTASES TO PANCREAS [None]
  - PALMAR-PLANTAR ERYTHRODYSAESTHESIA SYNDROME [None]
  - SKIN LESION [None]
  - SKIN ULCER [None]
  - STOMATITIS [None]
